FAERS Safety Report 18973731 (Version 1)
Quarter: 2021Q1

REPORT INFORMATION
  Report Type: Spontaneous
  Country: US (occurrence: US)
  Receive Date: 20210304
  Receipt Date: 20210304
  Transmission Date: 20210420
  Serious: Yes (Hospitalization)
  Sender: FDA-Public Use
  Company Number: None

PATIENT
  Sex: Female

DRUGS (1)
  1. OTEZLA [Suspect]
     Active Substance: APREMILAST
     Indication: PSORIASIS
     Route: 048
     Dates: start: 202002

REACTIONS (6)
  - Internal haemorrhage [None]
  - Ulcer [None]
  - COVID-19 [None]
  - Myocardial infarction [None]
  - Pulmonary embolism [None]
  - Therapy interrupted [None]
